FAERS Safety Report 6403051-0 (Version None)
Quarter: 2009Q4

REPORT INFORMATION
  Report Type: 
  Country: None (occurrence: None)
  Receive Date: 20091015
  Receipt Date: 20091015
  Transmission Date: 20100525
  Serious: Yes (Other)
  Sender: FDA-Public Use
  Company Number: None

PATIENT
  Age: 52 Year
  Sex: Female
  Weight: 68.0396 kg

DRUGS (1)
  1. CIPROFLAXACIN [Suspect]
     Indication: TOOTH EXTRACTION
     Dosage: 500MG TABLET TWICE DAILY ORAL
     Route: 048
     Dates: start: 20081112

REACTIONS (2)
  - EPICONDYLITIS [None]
  - TENDONITIS [None]
